FAERS Safety Report 9729032 (Version 2)
Quarter: 2013Q4

REPORT INFORMATION
  Report Type: Spontaneous
  Country: JP (occurrence: JP)
  Receive Date: 20131204
  Receipt Date: 20131227
  Transmission Date: 20140711
  Serious: Yes (Hospitalization)
  Sender: FDA-Public Use
  Company Number: JP-ASTRAZENECA-2013SE87633

PATIENT
  Age: 80 Year
  Sex: Female
  Weight: 47 kg

DRUGS (2)
  1. FASLODEX [Suspect]
     Indication: BREAST CANCER RECURRENT
     Route: 030
     Dates: start: 20130809
  2. FASLODEX [Suspect]
     Indication: BREAST CANCER RECURRENT
     Route: 030
     Dates: start: 20130809, end: 20131101

REACTIONS (2)
  - Injection site infection [Recovered/Resolved]
  - Injection site necrosis [Recovered/Resolved]
